FAERS Safety Report 25707269 (Version 1)
Quarter: 2025Q3

REPORT INFORMATION
  Report Type: Spontaneous
  Country: US (occurrence: None)
  Receive Date: 20250820
  Receipt Date: 20250820
  Transmission Date: 20251020
  Serious: Yes (Other)
  Sender: FDA-CTU
  Company Number: None

PATIENT
  Age: 72 Year
  Sex: Female

DRUGS (11)
  1. PIQRAY [Suspect]
     Active Substance: ALPELISIB
     Indication: Metastases to lung
     Dosage: FREQUENCY : DAILY;?
     Route: 048
     Dates: start: 20240503, end: 20250729
  2. calcium citrate tablets [Concomitant]
  3. FAMOTIDINE [Concomitant]
     Active Substance: FAMOTIDINE
  4. faslodex 250mg/5ml inj [Concomitant]
  5. LOSARTAN [Concomitant]
     Active Substance: LOSARTAN
  6. ROSUVASTATIN [Concomitant]
     Active Substance: ROSUVASTATIN
  7. VENTOLIN HFA [Concomitant]
     Active Substance: ALBUTEROL SULFATE
  8. vitamin D3 2000 IU tablets [Concomitant]
  9. XGEVA [Concomitant]
     Active Substance: DENOSUMAB
  10. hydrochlorothiazide 12.5mg capsules [Concomitant]
  11. LETROZOLE [Concomitant]
     Active Substance: LETROZOLE

REACTIONS (1)
  - Therapy non-responder [None]
